FAERS Safety Report 5599962-9 (Version None)
Quarter: 2008Q1

REPORT INFORMATION
  Report Type: 
  Country: None (occurrence: None)
  Receive Date: 20080123
  Receipt Date: 20080119
  Transmission Date: 20080703
  Serious: Yes (Death)
  Sender: FDA-Public Use
  Company Number: IL-NOVOPROD-271200

PATIENT

DRUGS (1)
  1. NOVOSEVEN [Suspect]
     Dosage: 9.6 MG, SINGLE
     Route: 042
     Dates: start: 20080116, end: 20080116

REACTIONS (1)
  - MYOCARDIAL INFARCTION [None]
